FAERS Safety Report 19937229 (Version 1)
Quarter: 2021Q4

REPORT INFORMATION
  Report Type: Spontaneous
  Country: US (occurrence: US)
  Receive Date: 20211010
  Receipt Date: 20211010
  Transmission Date: 20220303
  Serious: No
  Sender: FDA-Public Use
  Company Number: US-JNJFOC-20211007360

PATIENT
  Sex: Female

DRUGS (2)
  1. UPTRAVI [Suspect]
     Active Substance: SELEXIPAG
     Indication: Product used for unknown indication
     Dosage: 200-800 UG
     Route: 048
  2. OPSUMIT [Suspect]
     Active Substance: MACITENTAN
     Indication: Product used for unknown indication
     Route: 048

REACTIONS (1)
  - Amnesia [Unknown]
